FAERS Safety Report 8109965-8 (Version None)
Quarter: 2012Q1

REPORT INFORMATION
  Report Type: 
  Country: None (occurrence: None)
  Receive Date: 20120202
  Receipt Date: 20120123
  Transmission Date: 20120608
  Serious: No
  Sender: FDA-Public Use
  Company Number: US-AMGEN-USASP2012004762

PATIENT
  Age: 55 Year
  Sex: Male
  Weight: 83.9 kg

DRUGS (8)
  1. ISOSORBIDE MONONITRATE [Concomitant]
     Dosage: 120 MG ER
  2. ASPIRIN [Concomitant]
     Dosage: 81 MG EC
  3. CRESTOR [Concomitant]
     Dosage: 20 MG, UNK
  4. PLAVIX [Concomitant]
     Dosage: 75 MG, UNK
  5. VITAMIN D [Concomitant]
     Dosage: 1000 UNIT
  6. ENBREL [Suspect]
     Indication: PRODUCT USED FOR UNKNOWN INDICATION
     Dosage: 50 MG, 2 TIMES/WK
     Route: 058
  7. DILTIAZEM HCL [Concomitant]
     Dosage: 120 MG/24
  8. NITRO-DUR [Concomitant]
     Dosage: 0.2 MG PER HOUR

REACTIONS (1)
  - NASOPHARYNGITIS [None]
